FAERS Safety Report 20712075 (Version 4)
Quarter: 2022Q3

REPORT INFORMATION
  Report Type: Report from Study
  Country: BR (occurrence: BR)
  Receive Date: 20220414
  Receipt Date: 20220811
  Transmission Date: 20221027
  Serious: Yes (Hospitalization, Disabling, Other)
  Sender: FDA-Public Use
  Company Number: BR-ABBVIE-22K-020-4357423-00

PATIENT
  Sex: Male
  Weight: 107 kg

DRUGS (1)
  1. RINVOQ [Suspect]
     Active Substance: UPADACITINIB
     Indication: Rheumatoid arthritis
     Route: 048
     Dates: start: 202105

REACTIONS (5)
  - Femur fracture [Recovering/Resolving]
  - Femur fracture [Unknown]
  - Bedridden [Recovered/Resolved]
  - Fall [Unknown]
  - Gait disturbance [Recovering/Resolving]

NARRATIVE: CASE EVENT DATE: 20220101
